FAERS Safety Report 9840879 (Version 2)
Quarter: 2014Q3

REPORT INFORMATION
  Report Type: Spontaneous
  Country: US (occurrence: US)
  Receive Date: 20140124
  Receipt Date: 20140813
  Transmission Date: 20150326
  Serious: Yes (Hospitalization, Other)
  Sender: FDA-Public Use
  Company Number: US-009507513-1401USA010282

PATIENT
  Sex: Female
  Weight: 73.16 kg

DRUGS (1)
  1. NUVARING [Suspect]
     Active Substance: ETHINYL ESTRADIOL\ETONOGESTREL
     Indication: MIGRAINE
     Dosage: 0.12-0.15 MG/24HRS
     Route: 067
     Dates: start: 20091215

REACTIONS (6)
  - Spinal fusion surgery [Unknown]
  - Off label use [Unknown]
  - Back disorder [Unknown]
  - Pulmonary embolism [Unknown]
  - Laceration [Unknown]
  - Lichen sclerosus [Unknown]

NARRATIVE: CASE EVENT DATE: 20091215
